FAERS Safety Report 20840352 (Version 2)
Quarter: 2022Q2

REPORT INFORMATION
  Report Type: Report from Study
  Country: US (occurrence: US)
  Receive Date: 20220517
  Receipt Date: 20220523
  Transmission Date: 20220720
  Serious: Yes (Hospitalization)
  Sender: FDA-Public Use
  Company Number: US-JNJFOC-20220526402

PATIENT
  Age: 15 Year
  Sex: Male
  Weight: 51.5 kg

DRUGS (3)
  1. INFLIXIMAB [Suspect]
     Active Substance: INFLIXIMAB
     Indication: Inflammatory bowel disease
     Route: 042
     Dates: start: 20150501, end: 20150805
  2. STELARA [Concomitant]
     Active Substance: USTEKINUMAB
     Dates: start: 20180815
  3. FERROUS SULFATE [Concomitant]
     Active Substance: FERROUS SULFATE

REACTIONS (1)
  - Internal hernia [Recovered/Resolved]

NARRATIVE: CASE EVENT DATE: 20220409
